FAERS Safety Report 12406804 (Version 2)
Quarter: 2016Q2

REPORT INFORMATION
  Report Type: Spontaneous
  Country: US (occurrence: US)
  Receive Date: 20160526
  Receipt Date: 20160526
  Transmission Date: 20160815
  Serious: No
  Sender: FDA-Public Use
  Company Number: US-JAZZ-2015-US-015499

PATIENT
  Sex: Male
  Weight: 104.76 kg

DRUGS (6)
  1. L-CARNITINE [Concomitant]
     Active Substance: LEVOCARNITINE
     Indication: PRODUCT USED FOR UNKNOWN INDICATION
     Dosage: UNK
     Dates: start: 20150414, end: 20150512
  2. XYREM [Suspect]
     Active Substance: SODIUM OXYBATE
     Indication: PARASOMNIA
     Dosage: DOSE ADJUSTMENTS
     Route: 048
  3. MULTIVITAMIN [Concomitant]
     Active Substance: VITAMINS
     Indication: PRODUCT USED FOR UNKNOWN INDICATION
     Dosage: UNK
     Dates: start: 20150401
  4. XYREM [Suspect]
     Active Substance: SODIUM OXYBATE
     Indication: NARCOLEPSY
     Dosage: 2.25 G, BID
     Route: 048
     Dates: start: 201505, end: 2015
  5. NUVIGIL [Concomitant]
     Active Substance: ARMODAFINIL
     Indication: DISTURBANCE IN ATTENTION
     Dosage: UNK
     Dates: start: 20150512
  6. XYREM [Suspect]
     Active Substance: SODIUM OXYBATE
     Dosage: 4.5 G, BID
     Route: 048
     Dates: start: 2015

REACTIONS (4)
  - Gait disturbance [Unknown]
  - Ligament sprain [Unknown]
  - Tendonitis [Unknown]
  - Joint injury [Unknown]

NARRATIVE: CASE EVENT DATE: 2015
